FAERS Safety Report 6457777-3 (Version None)
Quarter: 2009Q4

REPORT INFORMATION
  Report Type: 
  Country: None (occurrence: None)
  Receive Date: 20091125
  Receipt Date: 20091015
  Transmission Date: 20100525
  Serious: Yes (Other)
  Sender: FDA-Public Use
  Company Number: US-PFIZER INC-2009281589

PATIENT
  Sex: Female
  Weight: 54.431 kg

DRUGS (2)
  1. XALATAN [Suspect]
     Indication: GLAUCOMA
     Dosage: 1 DROP IN EACH EYE EVERY NIGHT
     Route: 047
  2. TOPROL-XL [Concomitant]
     Indication: HYPERTENSION

REACTIONS (1)
  - INTRAOCULAR PRESSURE INCREASED [None]
